FAERS Safety Report 9940866 (Version 2)
Quarter: 2014Q1

REPORT INFORMATION
  Report Type: Spontaneous
  Country: CL (occurrence: CL)
  Receive Date: 20140303
  Receipt Date: 20140318
  Transmission Date: 20141002
  Serious: Yes (Other)
  Sender: FDA-Public Use
  Company Number: CL-PFIZER INC-2014057936

PATIENT
  Age: 87 Year
  Sex: Female

DRUGS (6)
  1. XALATAN [Suspect]
     Indication: GLAUCOMA
     Dosage: 1 DROP, 2X/DAY
     Route: 047
     Dates: start: 1986
  2. TRAMADOL [Concomitant]
  3. ACETAMINOPHEN [Concomitant]
  4. ENALAPRIL [Concomitant]
  5. ALPRAZOLAM [Concomitant]
  6. CARDICON - SLOW RELEASE ^LABOMED^ [Concomitant]

REACTIONS (5)
  - Glaucoma [Unknown]
  - Lacrimal disorder [Unknown]
  - Arthritis [Unknown]
  - Hypertension [Unknown]
  - Incorrect dose administered [Not Recovered/Not Resolved]
